FAERS Safety Report 4515299-0 (Version None)
Quarter: 2004Q4

REPORT INFORMATION
  Report Type: 
  Country: None (occurrence: None)
  Receive Date: 20041201
  Receipt Date: 20041119
  Transmission Date: 20050328
  Serious: Yes (Hospitalization)
  Sender: FDA-Public Use
  Company Number: SE-NOVOPROD-240636

PATIENT
  Age: 79 Year
  Sex: Male
  Weight: 70 kg

DRUGS (8)
  1. LANTUS [Suspect]
     Indication: DIABETES MELLITUS NON-INSULIN-DEPENDENT
     Dosage: 24 IU, QD
     Route: 058
     Dates: start: 20041101
  2. NOVORAPID FLEXPEN [Suspect]
     Indication: DIABETES MELLITUS NON-INSULIN-DEPENDENT
     Dosage: 36 IU, QD
     Route: 058
     Dates: start: 20041101
  3. ASPIRIN [Concomitant]
     Dosage: 75 MG, QD
     Route: 048
     Dates: start: 20000101, end: 20041118
  4. ASPIRIN [Concomitant]
     Dosage: UNK MG, QD
     Route: 048
     Dates: start: 20041119
  5. SIMVASTATIN [Concomitant]
     Dosage: 20 MG, QD
     Route: 048
     Dates: start: 20000101
  6. ZESTRIL [Concomitant]
     Dosage: 5 MG, QD
     Route: 048
     Dates: start: 20000101
  7. STESOLID [Concomitant]
  8. STESOLID [Concomitant]
     Dosage: OVERDOSE

REACTIONS (2)
  - LOSS OF CONSCIOUSNESS [None]
  - OVERDOSE [None]
